FAERS Safety Report 17439600 (Version 1)
Quarter: 2020Q1

REPORT INFORMATION
  Report Type: Spontaneous
  Country: US (occurrence: US)
  Receive Date: 20200205
  Receipt Date: 20200205
  Transmission Date: 20200409
  Serious: Yes (Hospitalization)
  Sender: FDA-Public Use
  Company Number: None

PATIENT
  Age: 61 Year
  Sex: Female

DRUGS (8)
  1. DULOXETINE CAP [Concomitant]
     Active Substance: DULOXETINE HYDROCHLORIDE
  2. AMITRIPTYLIN TAB [Concomitant]
  3. SUMATRIPTAN TAB [Concomitant]
  4. HUMIRA [Suspect]
     Active Substance: ADALIMUMAB
     Indication: RHEUMATOID ARTHRITIS
     Route: 058
     Dates: start: 20190910
  5. HYDROXYZ HCL TAB [Concomitant]
  6. PREGABALIN CAP [Concomitant]
     Active Substance: PREGABALIN
  7. OXYCODONE TAB [Concomitant]
  8. AMITRIPTYLIN TAB [Concomitant]

REACTIONS (2)
  - Condition aggravated [None]
  - Therapy cessation [None]
